FAERS Safety Report 21621726 (Version 2)
Quarter: 2022Q4

REPORT INFORMATION
  Report Type: Spontaneous
  Country: US (occurrence: US)
  Receive Date: 20221121
  Receipt Date: 20221201
  Transmission Date: 20230113
  Serious: Yes (Hospitalization, Other)
  Sender: FDA-Public Use
  Company Number: US-BAYER-2022A160595

PATIENT
  Age: 15 Year
  Sex: Male

DRUGS (1)
  1. KOVALTRY [Suspect]
     Active Substance: ANTIHEMOPHILIC FACTOR, HUMAN RECOMBINANT
     Dosage: 2000 DF

REACTIONS (3)
  - Joint swelling [None]
  - Haemarthrosis [None]
  - Traumatic haemorrhage [None]

NARRATIVE: CASE EVENT DATE: 20220501
